FAERS Safety Report 15862584 (Version 3)
Quarter: 2019Q1

REPORT INFORMATION
  Report Type: Spontaneous
  Country: US (occurrence: US)
  Receive Date: 20190124
  Receipt Date: 20190307
  Transmission Date: 20190417
  Serious: Yes (Other)
  Sender: FDA-Public Use
  Company Number: US-PFIZER INC-2019025530

PATIENT
  Age: 79 Year
  Sex: Female
  Weight: 54.38 kg

DRUGS (3)
  1. ROBITUSSIN HONEY MAXIMUM STRENGTH COUGH AND CHEST CONGESTION DM [Suspect]
     Active Substance: DEXTROMETHORPHAN HYDROBROMIDE\GUAIFENESIN
     Indication: COUGH
  2. ROBITUSSIN HONEY MAXIMUM STRENGTH COUGH AND CHEST CONGESTION DM [Suspect]
     Active Substance: DEXTROMETHORPHAN HYDROBROMIDE\GUAIFENESIN
     Indication: BRONCHITIS
     Dosage: UNK UNK, SINGLE (A LITTLE UNDER 20ML SWALLOWED ONCE)
     Route: 048
     Dates: start: 20190102, end: 20190102
  3. BACTRIM [Concomitant]
     Active Substance: SULFAMETHOXAZOLE\TRIMETHOPRIM
     Indication: BRONCHITIS
     Dosage: 1 DF, 2X/DAY
     Route: 048
     Dates: start: 20181230, end: 20190108

REACTIONS (2)
  - Product physical issue [Recovered/Resolved]
  - Choking [Recovered/Resolved]

NARRATIVE: CASE EVENT DATE: 20190102
